FAERS Safety Report 18060699 (Version 2)
Quarter: 2025Q4

REPORT INFORMATION
  Report Type: Spontaneous
  Country: US (occurrence: US)
  Receive Date: 20200723
  Receipt Date: 20251017
  Transmission Date: 20260118
  Serious: Yes (Hospitalization, Other)
  Sender: MYLAN
  Company Number: US-MYLANLABS-2020M1065865

PATIENT
  Age: 50 Year
  Sex: Female

DRUGS (20)
  1. TACROLIMUS [Interacting]
     Active Substance: TACROLIMUS
     Indication: Immunosuppressant drug therapy
     Dosage: 1.5 MILLIGRAM, BID
  2. TACROLIMUS [Interacting]
     Active Substance: TACROLIMUS
     Indication: Renal transplant
     Dosage: 1.5 MILLIGRAM, BID
     Route: 065
  3. TACROLIMUS [Interacting]
     Active Substance: TACROLIMUS
     Dosage: 1.5 MILLIGRAM, BID
     Route: 065
  4. TACROLIMUS [Interacting]
     Active Substance: TACROLIMUS
     Dosage: 1.5 MILLIGRAM, BID
  5. MYCOPHENOLATE MOFETIL [Interacting]
     Active Substance: MYCOPHENOLATE MOFETIL
     Indication: Immunosuppressant drug therapy
     Dosage: 540 MILLIGRAM, BID
  6. MYCOPHENOLATE MOFETIL [Interacting]
     Active Substance: MYCOPHENOLATE MOFETIL
     Dosage: 540 MILLIGRAM, BID
     Route: 065
  7. MYCOPHENOLATE MOFETIL [Interacting]
     Active Substance: MYCOPHENOLATE MOFETIL
     Dosage: 540 MILLIGRAM, BID
     Route: 065
  8. MYCOPHENOLATE MOFETIL [Interacting]
     Active Substance: MYCOPHENOLATE MOFETIL
     Dosage: 540 MILLIGRAM, BID
  9. PREDNISONE [Interacting]
     Active Substance: PREDNISONE
     Indication: Immunosuppressant drug therapy
     Dosage: 5 MILLIGRAM, QD
  10. PREDNISONE [Interacting]
     Active Substance: PREDNISONE
     Dosage: 5 MILLIGRAM, QD
     Route: 065
  11. PREDNISONE [Interacting]
     Active Substance: PREDNISONE
     Dosage: 5 MILLIGRAM, QD
     Route: 065
  12. PREDNISONE [Interacting]
     Active Substance: PREDNISONE
     Dosage: 5 MILLIGRAM, QD
  13. AMPHOTERICIN B [Interacting]
     Active Substance: AMPHOTERICIN B
     Indication: Histoplasmosis disseminated
     Dosage: UNK
  14. AMPHOTERICIN B [Interacting]
     Active Substance: AMPHOTERICIN B
     Dosage: UNK
     Route: 042
  15. AMPHOTERICIN B [Interacting]
     Active Substance: AMPHOTERICIN B
     Dosage: UNK
     Route: 042
  16. AMPHOTERICIN B [Interacting]
     Active Substance: AMPHOTERICIN B
     Dosage: UNK
  17. ITRACONAZOLE [Concomitant]
     Active Substance: ITRACONAZOLE
     Indication: Histoplasmosis disseminated
     Dosage: UNK
  18. ITRACONAZOLE [Concomitant]
     Active Substance: ITRACONAZOLE
     Dosage: UNK
     Route: 065
  19. ITRACONAZOLE [Concomitant]
     Active Substance: ITRACONAZOLE
     Dosage: UNK
     Route: 065
  20. ITRACONAZOLE [Concomitant]
     Active Substance: ITRACONAZOLE
     Dosage: UNK

REACTIONS (6)
  - Histoplasmosis disseminated [Recovering/Resolving]
  - Pancytopenia [Recovered/Resolved]
  - Weight decreased [Recovered/Resolved]
  - Transaminases increased [Recovered/Resolved]
  - Drug interaction [Recovered/Resolved]
  - Drug level increased [Recovered/Resolved]
